FAERS Safety Report 6147021-9 (Version None)
Quarter: 2009Q2

REPORT INFORMATION
  Report Type: 
  Country: None (occurrence: None)
  Receive Date: 20090403
  Receipt Date: 20090323
  Transmission Date: 20091009
  Serious: Yes (Other)
  Sender: FDA-Public Use
  Company Number: ADE2009-0513

PATIENT
  Age: 68 Year
  Sex: Female

DRUGS (1)
  1. GABAPENTIN [Suspect]
     Indication: BACK PAIN

REACTIONS (4)
  - ATAXIA [None]
  - CEREBELLAR SYNDROME [None]
  - CEREBRAL MICROANGIOPATHY [None]
  - CHOREA [None]
